FAERS Safety Report 7622059-0 (Version None)
Quarter: 2011Q3

REPORT INFORMATION
  Report Type: 
  Country: None (occurrence: None)
  Receive Date: 20110720
  Receipt Date: 20110315
  Transmission Date: 20111222
  Serious: Yes (Hospitalization)
  Sender: FDA-Public Use
  Company Number: US-BAYER-2010-008996

PATIENT
  Age: 73 Year
  Sex: Female

DRUGS (39)
  1. VITAMIN D [Concomitant]
     Dosage: UNK
     Dates: start: 20101206
  2. TRIAMTERENE AND HYDROCHLOROTHIAZIDE [Concomitant]
     Dosage: UNK
     Dates: start: 20080902, end: 20090115
  3. PROMETHAZINE - CODEINE [CODEINE PHOSPHATE,PROMETHAZINE HYDROCHLORI [Concomitant]
  4. JANUVIA [Concomitant]
     Dosage: DAILY DOSE 50 MG
     Dates: start: 20100902
  5. MOVIPREP [Concomitant]
     Dosage: UNK
     Dates: start: 20101205
  6. ONDANSETRON [Concomitant]
     Dosage: UNK
     Dates: start: 20101030
  7. DIOVAN [Concomitant]
     Dosage: DAILY DOSE 160 MG
     Dates: start: 20080209
  8. ASPIRIN [Concomitant]
     Dosage: DAILY DOSE 325 MG
     Dates: start: 20080902
  9. NEXAVAR [Suspect]
     Indication: HEPATIC NEOPLASM MALIGNANT
     Dosage: 200 MG, BID
     Route: 048
     Dates: start: 20080801
  10. ALLOPURINOL [Concomitant]
     Dosage: UNK
     Dates: start: 20100417
  11. HYDROCODONE BITARTRATE AND ACETAMINOPHEN [Concomitant]
     Dosage: UNK
     Dates: start: 20101230
  12. MAGNESIUM OXIDE [Concomitant]
     Dosage: UNK
     Dates: start: 20101230, end: 20110119
  13. DRONABINOL [Concomitant]
     Dosage: UNK
     Dates: start: 20100901
  14. MORPHINE SULFATE [Concomitant]
     Dosage: UNK
     Dates: start: 20110107
  15. POTASSIUM CHLORIDE [Concomitant]
     Dosage: UNK
     Dates: start: 20101230
  16. MARINOL [Concomitant]
  17. HYDROCHLOROTHIAZIDE [Concomitant]
     Dosage: DAILY DOSE 25 MG
     Dates: start: 20090115
  18. METRONIDAZOLE [Concomitant]
     Dosage: UNK
     Dates: start: 20101025
  19. METOPROLOL TARTRATE [Concomitant]
     Dosage: UNK
     Dates: start: 20090527
  20. OXYCODONE HCL [Concomitant]
     Dosage: UNK
     Dates: start: 20101108
  21. AMLODIPINE BESYLATE [Concomitant]
     Dosage: UNK
     Dates: start: 20101025, end: 20101209
  22. AMLODIPINE BESYLATE [Concomitant]
     Dosage: UNK
     Dates: start: 20110309
  23. LANTUS [Concomitant]
     Dosage: UNK UNK, HS
     Dates: start: 20081215
  24. NEXAVAR [Suspect]
     Dosage: 400 MG, BID
     Route: 048
     Dates: start: 20080903
  25. METOPROLOL TARTRATE [Concomitant]
     Dosage: UNK MG, UNK
     Dates: start: 20100726
  26. ALLOPURINOL [Concomitant]
     Dosage: UNK
     Dates: start: 20090527
  27. JANUVIA [Concomitant]
     Dosage: 100 MG
     Dates: start: 20110223
  28. DRONABINOL [Concomitant]
     Dosage: UNK
     Dates: start: 20110113
  29. MARINOL [Concomitant]
     Dosage: UNK UNK, BID
     Dates: start: 20100809
  30. NIASPAN [Concomitant]
     Dosage: DAILY DOSE 1000 MG
     Dates: start: 20080902
  31. NEXAVAR [Suspect]
     Dosage: 200 MG, BID
     Route: 048
     Dates: start: 20090901
  32. LOMOTIL [DIPHENOXYLATE HYDROCHLORIDE] [Concomitant]
     Dosage: UNK
     Dates: start: 20091111
  33. TRAMADOL HCL [Concomitant]
     Dosage: UNK
     Dates: start: 20100812
  34. CHOLESTYRAMINE [Concomitant]
     Dosage: UNK
     Dates: start: 20110114
  35. DIPHENOXYLATE HCL AND ATROPINE SULFATE [Concomitant]
     Dosage: UNK
     Dates: start: 20101111
  36. LEVAQUIN [Concomitant]
     Dosage: UNK
     Dates: start: 20101025
  37. TOPROL-XL [Concomitant]
     Dosage: DAILY DOSE 50 MG
     Dates: start: 20080902
  38. MULTI-VITAMIN [Concomitant]
     Dosage: UNK UNK, QD
     Dates: start: 20080209
  39. PROAIR HFA [Concomitant]
     Dosage: UNK
     Dates: start: 20110204

REACTIONS (9)
  - NAUSEA [None]
  - DIARRHOEA [None]
  - DYSPNOEA [None]
  - PAIN IN EXTREMITY [None]
  - HEADACHE [None]
  - FATIGUE [None]
  - ELECTROLYTE IMBALANCE [None]
  - GAIT DISTURBANCE [None]
  - PALMAR-PLANTAR ERYTHRODYSAESTHESIA SYNDROME [None]
